FAERS Safety Report 7534921-8 (Version None)
Quarter: 2011Q2

REPORT INFORMATION
  Report Type: 
  Country: None (occurrence: None)
  Receive Date: 20110609
  Receipt Date: 20110601
  Transmission Date: 20111010
  Serious: Yes (Hospitalization)
  Sender: FDA-Public Use
  Company Number: US-BIOGENIDEC-2011BI005536

PATIENT
  Age: 53 Year
  Sex: Female
  Weight: 72 kg

DRUGS (2)
  1. AVONEX [Suspect]
     Route: 030
     Dates: start: 19990301, end: 20020820
  2. AVONEX [Suspect]
     Indication: MULTIPLE SCLEROSIS
     Route: 030
     Dates: start: 20050711

REACTIONS (4)
  - SMALL INTESTINAL OBSTRUCTION [None]
  - PROCEDURAL PAIN [None]
  - DIARRHOEA [None]
  - ASTHENIA [None]
